FAERS Safety Report 12644594 (Version 3)
Quarter: 2016Q4

REPORT INFORMATION
  Report Type: Spontaneous
  Country: JP (occurrence: JP)
  Receive Date: 20160811
  Receipt Date: 20161019
  Transmission Date: 20170207
  Serious: Yes (Hospitalization, Other)
  Sender: FDA-Public Use
  Company Number: JP-TEVA-684221ACC

PATIENT
  Age: 8 Decade
  Sex: Male

DRUGS (3)
  1. VORICONAZOLE. [Suspect]
     Active Substance: VORICONAZOLE
     Indication: PRODUCT USED FOR UNKNOWN INDICATION
     Route: 065
  2. RITUXIMAB [Concomitant]
     Active Substance: RITUXIMAB
     Indication: B-CELL LYMPHOMA
     Dosage: (22 CYCLES)
     Route: 041
  3. BENDAMUSTINE HYDROCHLORIDE. [Suspect]
     Active Substance: BENDAMUSTINE HYDROCHLORIDE
     Indication: B-CELL LYMPHOMA
     Dosage: (16 CYCLES)
     Route: 042

REACTIONS (4)
  - Gastric cancer [Unknown]
  - Liver disorder [Recovering/Resolving]
  - Oesophageal candidiasis [Unknown]
  - Influenza [Unknown]

NARRATIVE: CASE EVENT DATE: 201509
